FAERS Safety Report 19619117 (Version 1)
Quarter: 2021Q3

REPORT INFORMATION
  Report Type: Spontaneous
  Country: US (occurrence: US)
  Receive Date: 20210728
  Receipt Date: 20210728
  Transmission Date: 20211014
  Serious: No
  Sender: FDA-Public Use
  Company Number: US-ROCHE-2705746

PATIENT
  Age: 78 Year
  Sex: Female

DRUGS (3)
  1. XELODA [Suspect]
     Active Substance: CAPECITABINE
     Dosage: 2 IN THE MORNING AND 3 IN THE NIGHT; 1000 MG IN THE MORNING AND 1500 MG IN THE NIGHT
     Route: 048
     Dates: start: 20201119
  2. XELODA [Suspect]
     Active Substance: CAPECITABINE
     Route: 048
     Dates: start: 202101
  3. XELODA [Suspect]
     Active Substance: CAPECITABINE
     Indication: PRODUCT USED FOR UNKNOWN INDICATION
     Dosage: DOSE: 2 IN MORNING AND 2 AT NIGHT
     Route: 048
     Dates: start: 20201022

REACTIONS (13)
  - Fatigue [Unknown]
  - Tinnitus [Unknown]
  - Dizziness [Unknown]
  - Gastrointestinal disorder [Unknown]
  - Alopecia [Unknown]
  - Frequent bowel movements [Unknown]
  - Faeces soft [Unknown]
  - Dysphonia [Unknown]
  - Dry mouth [Unknown]
  - Dry skin [Unknown]
  - Decreased appetite [Recovered/Resolved]
  - Nausea [Recovered/Resolved]
  - Diarrhoea [Recovered/Resolved]

NARRATIVE: CASE EVENT DATE: 20201022
